FAERS Safety Report 5117842-X (Version None)
Quarter: 2006Q3

REPORT INFORMATION
  Report Type: 
  Country: None (occurrence: None)
  Receive Date: 20060929
  Receipt Date: 20060519
  Transmission Date: 20061208
  Serious: Yes (Death)
  Sender: FDA-Public Use
  Company Number: JP-SANOFI-SYNTHELABO-A01200604081

PATIENT
  Sex: Female

DRUGS (12)
  1. ISOVORIN [Suspect]
     Dosage: 100.8 MG/M2 ON DAYS 1 AND 2
     Route: 042
     Dates: start: 20060311, end: 20060312
  2. OXALIPLATIN [Suspect]
     Indication: RECTAL CANCER
     Dosage: 64.5 MG/M2 ON DA 1
     Route: 042
     Dates: start: 20060311, end: 20060311
  3. FLUOROURACIL [Suspect]
     Dosage: 330.6MG/M2 IN BOLUS THEN 330.6MG/M2 AS CONTINUOUS INFUSION ON DAYS 1 AND 2
     Route: 042
     Dates: start: 20060311, end: 20060312
  4. LIDOCAINE [Concomitant]
     Indication: BLOOD PRESSURE DECREASED
     Dosage: 3 DOSAGE FORM
     Route: 042
     Dates: start: 20060317, end: 20060317
  5. EPINEPHRINE [Concomitant]
     Indication: ANTIBIOTIC PROPHYLAXIS
     Dosage: 1 DOSAGE FORM
     Route: 042
     Dates: start: 20060316, end: 20060317
  6. IMIPENEM CILASTATIN [Concomitant]
     Route: 042
     Dates: start: 20060316, end: 20060316
  7. FAMOTIDINE [Concomitant]
     Indication: STOMACH DISCOMFORT
     Dosage: 1 DOSAGE FORM
     Dates: start: 20060309, end: 20060310
  8. METOCLOPRAMIDE [Concomitant]
     Indication: NAUSEA
     Route: 048
     Dates: start: 20060307
  9. METOCLOPRAMIDE [Concomitant]
     Dosage: 1 DOSAGE FORM
     Dates: start: 20060312, end: 20060315
  10. ONDANSETRON HCL [Concomitant]
     Indication: PROPHYLAXIS OF NAUSEA AND VOMITING
     Dosage: 1 DOSAGE FORM
     Dates: start: 20060222, end: 20060223
  11. ONDANSETRON HCL [Concomitant]
     Dosage: 1 DOSAGE FORM
     Dates: start: 20060309, end: 20060310
  12. DOPAMINE HCL [Concomitant]
     Indication: BLOOD PRESSURE DECREASED
     Dates: start: 20060317, end: 20060317

REACTIONS (6)
  - CARDIAC ARREST [None]
  - LEUKOPENIA [None]
  - NEUTROPENIA [None]
  - PNEUMONIA [None]
  - SEPTIC SHOCK [None]
  - THROMBOCYTOPENIA [None]
